FAERS Safety Report 7940928-9 (Version None)
Quarter: 2011Q4

REPORT INFORMATION
  Report Type: 
  Country: None (occurrence: None)
  Receive Date: 20111128
  Receipt Date: 20111115
  Transmission Date: 20120403
  Serious: Yes (Other)
  Sender: FDA-Public Use
  Company Number: DE-ELI_LILLY_AND_COMPANY-DE201111004779

PATIENT
  Age: 76 Year
  Sex: Female

DRUGS (3)
  1. PRAMIPEXOLE DIHYDROCHLORIDE [Concomitant]
  2. FORTEO [Suspect]
     Indication: OSTEOPOROSIS
     Dosage: UNK, QD
     Route: 058
     Dates: start: 20110816, end: 20110901
  3. CALCIUM W/VITAMIN D NOS [Concomitant]

REACTIONS (4)
  - PAIN [None]
  - RENAL FAILURE [None]
  - DYSURIA [None]
  - ABDOMINAL DISTENSION [None]
